FAERS Safety Report 14633480 (Version 4)
Quarter: 2018Q2

REPORT INFORMATION
  Report Type: Report from Study
  Country: None (occurrence: IL)
  Receive Date: 20180314
  Receipt Date: 20180403
  Transmission Date: 20180711
  Serious: Yes (Other)
  Sender: FDA-Public Use
  Company Number: IL-ABBVIE-17K-082-1964821-00

PATIENT
  Sex: Female

DRUGS (2)
  1. NEXIUM [Concomitant]
     Active Substance: ESOMEPRAZOLE MAGNESIUM
     Indication: PRODUCT USED FOR UNKNOWN INDICATION
  2. DUODOPA [Suspect]
     Active Substance: CARBIDOPA\LEVODOPA
     Indication: PARKINSON^S DISEASE
     Dosage: CURRENT MD- 5.5 ML, FIXED RATE- 3.2 ML/ HR(DAY AND NIGHT, TREATED 24 HOURS/DAY) ED- 2.5 ML
     Route: 050
     Dates: start: 20170402

REACTIONS (6)
  - Stoma site discharge [Recovered/Resolved]
  - Device deposit issue [Unknown]
  - Stoma site discharge [Unknown]
  - Stoma site pain [Not Recovered/Not Resolved]
  - Gastritis [Unknown]
  - Stoma site hypergranulation [Not Recovered/Not Resolved]

NARRATIVE: CASE EVENT DATE: 2017
